FAERS Safety Report 6106740-0 (Version None)
Quarter: 2009Q1

REPORT INFORMATION
  Report Type: 
  Country: None (occurrence: None)
  Receive Date: 20090304
  Receipt Date: 20090225
  Transmission Date: 20090719
  Serious: Yes (Hospitalization)
  Sender: FDA-Public Use
  Company Number: WAES 0902AUS00020

PATIENT
  Age: 45 Year
  Sex: Male

DRUGS (8)
  1. ISENTRESS [Suspect]
     Indication: HIV INFECTION
     Dosage: 800 MG/DAILY PO
     Route: 048
     Dates: start: 20081114, end: 20081202
  2. ETRAVIRINE [Suspect]
     Indication: HIV INFECTION
     Dosage: 400 MG/DAILY PO
     Route: 048
     Dates: start: 20081114, end: 20081202
  3. TRUVADA [Suspect]
     Indication: HIV INFECTION
     Dosage: PO
     Route: 048
     Dates: start: 20081114
  4. AZITHROMYCIN [Concomitant]
  5. DAPSONE [Concomitant]
  6. FLUCONAZOLE [Concomitant]
  7. METFORMIN HCL [Concomitant]
  8. PERINDOPRIL ERBUMINE [Concomitant]

REACTIONS (4)
  - DEHYDRATION [None]
  - DELIRIUM [None]
  - HEADACHE [None]
  - RENAL FAILURE ACUTE [None]
